FAERS Safety Report 9056111 (Version 3)
Quarter: 2013Q3

REPORT INFORMATION
  Report Type: Report from Study
  Country: US (occurrence: US)
  Receive Date: 20130205
  Receipt Date: 20130723
  Transmission Date: 20140515
  Serious: Yes (Hospitalization)
  Sender: FDA-Public Use
  Company Number: US-ELI_LILLY_AND_COMPANY-US201209000374

PATIENT
  Age: 69 Year
  Sex: Female
  Weight: 54.24 kg

DRUGS (15)
  1. TERIPARATIDE [Suspect]
     Indication: OSTEOPOROSIS
     Dosage: 20 UG, QD
     Dates: start: 20120701
  2. TERIPARATIDE [Suspect]
     Dosage: 20 UG, QD
  3. TERIPARATIDE [Suspect]
     Dosage: 20 UG, QD
  4. TERIPARATIDE [Suspect]
     Dosage: 20 UG, QD
  5. TERIPARATIDE [Suspect]
     Dosage: 20 UG, QD
  6. TRICOR [Concomitant]
     Dosage: 145 MG, QD
  7. VITAMIN D [Concomitant]
     Dosage: 50000 IU, MONTHLY (1/M)
  8. RANITIDINE [Concomitant]
     Dosage: 150 MG, BID
  9. SUCRALFATE [Concomitant]
     Dosage: 1 G, BID
  10. MELOXICAM [Concomitant]
     Dosage: 15 MG, QD
  11. LATANOPROST [Concomitant]
     Dosage: 1 GTT, QD, RIGHT EYE, 5%
  12. TIMOPTIC [Concomitant]
     Dosage: 1 GTT, BID, RIGHT EYE, 0.5%
  13. BRIMONIDINE [Concomitant]
     Dosage: 1 GTT, BID, RIGHT EYE, 2%
  14. CALTRATE [Concomitant]
     Dosage: 600 MG, QD
  15. MULTIVITAMIN [Concomitant]
     Dosage: 2, QD

REACTIONS (14)
  - Uterovaginal prolapse [Recovered/Resolved]
  - Stress urinary incontinence [Recovered/Resolved]
  - Cyst [Unknown]
  - Haematuria [Unknown]
  - Glaucoma [Unknown]
  - Visual impairment [Unknown]
  - Visual acuity reduced [Not Recovered/Not Resolved]
  - Eye disorder [Unknown]
  - Contusion [Unknown]
  - Nausea [Unknown]
  - Drug dose omission [Unknown]
  - Pain [Not Recovered/Not Resolved]
  - Ovarian mass [Unknown]
  - Injection site pain [Unknown]
